FAERS Safety Report 7044442-7 (Version None)
Quarter: 2010Q4

REPORT INFORMATION
  Report Type: 
  Country: None (occurrence: None)
  Receive Date: 20101008
  Receipt Date: 20101008
  Transmission Date: 20110411
  Serious: Yes (Other)
  Sender: FDA-Public Use
  Company Number: None

PATIENT
  Age: 55 Year
  Sex: Male

DRUGS (2)
  1. OXYCONTIN [Suspect]
     Indication: BACK PAIN
     Dosage: 20MG BID ORALLY
     Route: 048
     Dates: start: 20100913, end: 20100927
  2. OXYCONTIN [Suspect]
     Indication: SURGERY
     Dosage: 20MG BID ORALLY
     Route: 048
     Dates: start: 20100913, end: 20100927

REACTIONS (3)
  - BACK PAIN [None]
  - HEADACHE [None]
  - PRODUCT FORMULATION ISSUE [None]
